FAERS Safety Report 4264740-X (Version None)
Quarter: 2004Q1

REPORT INFORMATION
  Report Type: 
  Country: None (occurrence: None)
  Receive Date: 20040102
  Receipt Date: 20031222
  Transmission Date: 20041129
  Serious: Yes (Other)
  Sender: FDA-Public Use
  Company Number: 2003123581

PATIENT
  Age: 50 Year
  Sex: Female

DRUGS (4)
  1. NEURONTIN [Suspect]
     Indication: NEUROPATHIC PAIN
     Dosage: 100 MG (DAILY AT BEDTIME) , ORAL
     Route: 048
     Dates: start: 19981101
  2. FENTANYL [Concomitant]
  3. CLONAZEPAM [Concomitant]
  4. CELEBREX [Concomitant]

REACTIONS (11)
  - BREAST CANCER STAGE I [None]
  - COGNITIVE DISORDER [None]
  - DRUG DEPENDENCE [None]
  - DRUG TOLERANCE [None]
  - DYSARTHRIA [None]
  - FEELING ABNORMAL [None]
  - FOOD CRAVING [None]
  - HYPERPHAGIA [None]
  - NEUROPATHIC PAIN [None]
  - SOMNOLENCE [None]
  - WEIGHT INCREASED [None]
